FAERS Safety Report 7229756-X (Version None)
Quarter: 2011Q1

REPORT INFORMATION
  Report Type: 
  Country: None (occurrence: None)
  Receive Date: 20110117
  Receipt Date: 20101228
  Transmission Date: 20110831
  Serious: Yes (Other)
  Sender: FDA-Public Use
  Company Number: DE-PFIZER INC-2010172989

PATIENT
  Age: 38 Year
  Sex: Female

DRUGS (1)
  1. OMEPRAZOLE [Suspect]
     Dosage: 20 MG, UNK

REACTIONS (2)
  - NAUSEA [None]
  - CARDIOVASCULAR DISORDER [None]
